FAERS Safety Report 5418668-X (Version None)
Quarter: 2007Q3

REPORT INFORMATION
  Report Type: 
  Country: None (occurrence: None)
  Receive Date: 20070817
  Receipt Date: 20070808
  Transmission Date: 20080115
  Serious: Yes (Hospitalization, Other)
  Sender: FDA-Public Use
  Company Number: US-PFIZER INC-2006119912

PATIENT
  Sex: Male
  Weight: 79.4 kg

DRUGS (3)
  1. CELEBREX [Suspect]
     Indication: ARTHRITIS
     Dates: start: 20040101, end: 20050101
  2. BEXTRA [Suspect]
     Indication: ARTHRITIS
  3. VIOXX [Suspect]
     Route: 048
     Dates: start: 20010120, end: 20020509

REACTIONS (1)
  - CEREBROVASCULAR ACCIDENT [None]
